FAERS Safety Report 9125516 (Version 4)
Quarter: 2013Q1

REPORT INFORMATION
  Report Type: Spontaneous
  Country: PT (occurrence: PT)
  Receive Date: 20130227
  Receipt Date: 20130328
  Transmission Date: 20140127
  Serious: Yes (Hospitalization)
  Sender: FDA-Public Use
  Company Number: PT-GLAXOSMITHKLINE-B0870735A

PATIENT
  Sex: Male
  Weight: 70 kg

DRUGS (6)
  1. AVODART [Suspect]
     Indication: BENIGN PROSTATIC HYPERPLASIA
     Dosage: .5MG PER DAY
     Route: 048
     Dates: start: 199702
  2. UNKNOWN MEDICATION [Concomitant]
     Indication: PRODUCT USED FOR UNKNOWN INDICATION
     Route: 065
  3. ANTIBIOTICS (UNSPECIFIED) [Concomitant]
     Indication: SURGERY
     Route: 065
  4. OMEPRAZOLE [Concomitant]
     Dosage: 20MG PER DAY
  5. ALFUZOSINA [Concomitant]
     Dosage: 10MG PER DAY
  6. EUTIROX [Concomitant]
     Dosage: 88MCG PER DAY

REACTIONS (5)
  - Drug ineffective [Not Recovered/Not Resolved]
  - Medication residue present [Not Recovered/Not Resolved]
  - Intestinal polyp [Unknown]
  - Bladder disorder [Unknown]
  - Product quality issue [Unknown]
